FAERS Safety Report 10468776 (Version 4)
Quarter: 2014Q4

REPORT INFORMATION
  Report Type: Spontaneous
  Country: US (occurrence: US)
  Receive Date: 20140923
  Receipt Date: 20141105
  Transmission Date: 20150528
  Serious: Yes (Other)
  Sender: FDA-Public Use
  Company Number: US-AUROBINDO-AUR-APL-2014-10102

PATIENT
  Age: 81 Year
  Sex: Female
  Weight: 75 kg

DRUGS (4)
  1. METOPROLOL [Concomitant]
     Active Substance: METOPROLOL
     Indication: PRODUCT USED FOR UNKNOWN INDICATION
     Dosage: 50 MG, TWO TIMES A DAY
     Route: 065
  2. QUETIAPINE FUMARATE TABLETS 200MG [Suspect]
     Active Substance: QUETIAPINE FUMARATE
     Dosage: 200 MG, AT BEDTIME
     Route: 048
  3. HYDROCHLOROTHIAZIDE. [Concomitant]
     Active Substance: HYDROCHLOROTHIAZIDE
     Indication: PRODUCT USED FOR UNKNOWN INDICATION
     Route: 065
  4. QUETIAPINE FUMARATE TABLETS 200MG [Suspect]
     Active Substance: QUETIAPINE FUMARATE
     Indication: INSOMNIA
     Dosage: 50 UNK, UNK
     Route: 048

REACTIONS (7)
  - Weight increased [Not Recovered/Not Resolved]
  - Drug ineffective for unapproved indication [Recovering/Resolving]
  - Nasal disorder [Recovering/Resolving]
  - Nasal congestion [Recovering/Resolving]
  - Dyspnoea [Recovering/Resolving]
  - Insomnia [Recovering/Resolving]
  - Increased appetite [Recovering/Resolving]
